FAERS Safety Report 11554411 (Version 4)
Quarter: 2016Q1

REPORT INFORMATION
  Report Type: Report from Study
  Country: US (occurrence: US)
  Receive Date: 20150925
  Receipt Date: 20160308
  Transmission Date: 20160525
  Serious: No
  Sender: FDA-Public Use
  Company Number: PHEH2015US018896

PATIENT
  Sex: Female
  Weight: 72.57 kg

DRUGS (1)
  1. GILENYA [Suspect]
     Active Substance: FINGOLIMOD HYDROCHLORIDE
     Indication: MULTIPLE SCLEROSIS
     Dosage: 0.5 MG, QD
     Route: 048
     Dates: start: 20150514

REACTIONS (6)
  - Stress [Unknown]
  - Diarrhoea [Unknown]
  - Memory impairment [Unknown]
  - Hypertension [Unknown]
  - Abdominal pain upper [Unknown]
  - Hyperhidrosis [Unknown]
